FAERS Safety Report 5524717-0 (Version None)
Quarter: 2007Q4

REPORT INFORMATION
  Report Type: 
  Country: None (occurrence: None)
  Receive Date: 20071123
  Receipt Date: 20071120
  Transmission Date: 20080405
  Serious: Yes (Death, Hospitalization, Other)
  Sender: FDA-Public Use
  Company Number: PHEH2007US11771

PATIENT
  Age: 68 Year
  Sex: Male

DRUGS (2)
  1. EXJADE [Suspect]
     Indication: IRON OVERLOAD
     Dosage: 1300MG, QD
     Route: 048
     Dates: start: 20070713, end: 20070830
  2. DIGOXIN [Concomitant]
     Dates: end: 20070827

REACTIONS (41)
  - ABDOMINAL MASS [None]
  - AGONAL RHYTHM [None]
  - ALANINE AMINOTRANSFERASE INCREASED [None]
  - ARTERIOSCLEROSIS CORONARY ARTERY [None]
  - ASPARTATE AMINOTRANSFERASE INCREASED [None]
  - BILE DUCT OBSTRUCTION [None]
  - BILE DUCT STENT INSERTION [None]
  - BILIARY DILATATION [None]
  - BLOOD ALKALINE PHOSPHATASE INCREASED [None]
  - BLOOD BILIRUBIN INCREASED [None]
  - BLOOD CALCIUM DECREASED [None]
  - BLOOD CREATININE INCREASED [None]
  - BLOOD GLUCOSE DECREASED [None]
  - BLOOD UREA INCREASED [None]
  - BONE MARROW LEUKAEMIC CELL INFILTRATION [None]
  - CARDIAC ARREST [None]
  - CARDIOACTIVE DRUG LEVEL INCREASED [None]
  - CHROMATURIA [None]
  - CHRONIC MYELOID LEUKAEMIA [None]
  - CONFUSIONAL STATE [None]
  - FAECES DISCOLOURED [None]
  - GENERALISED OEDEMA [None]
  - GLOMERULAR FILTRATION RATE DECREASED [None]
  - HEPATOMEGALY [None]
  - HICCUPS [None]
  - HYPERKALAEMIA [None]
  - HYPERURICAEMIA [None]
  - HYPOTENSION [None]
  - INTUBATION [None]
  - JAUNDICE [None]
  - LYMPHADENOPATHY [None]
  - MENTAL STATUS CHANGES [None]
  - MICTURITION DISORDER [None]
  - MONOCYTE COUNT ABNORMAL [None]
  - MYOCARDIAL FIBROSIS [None]
  - PANCREATIC DISORDER [None]
  - PULMONARY CONGESTION [None]
  - PUPIL FIXED [None]
  - RENAL FAILURE ACUTE [None]
  - SPLENOMEGALY [None]
  - WHITE BLOOD CELL COUNT INCREASED [None]
